FAERS Safety Report 6767745-X (Version None)
Quarter: 2010Q2

REPORT INFORMATION
  Report Type: 
  Country: None (occurrence: None)
  Receive Date: 20100614
  Receipt Date: 20100603
  Transmission Date: 20101027
  Serious: Yes (Life-Threatening, Hospitalization, Other)
  Sender: FDA-Public Use
  Company Number: US-ROCHE-707248

PATIENT
  Sex: Male
  Weight: 124.3 kg

DRUGS (10)
  1. ACTEMRA [Suspect]
     Indication: RHEUMATOID ARTHRITIS
     Route: 042
     Dates: start: 20100407
  2. ACTEMRA [Suspect]
     Route: 042
     Dates: start: 20100510
  3. IMURAN [Concomitant]
  4. MIRTAZAPINE [Concomitant]
  5. LORTAB [Concomitant]
     Dosage: AS NEEDED, DRUG: LORTAB 10/500
  6. PREDNISONE [Concomitant]
     Route: 048
  7. RIBOXIN [Concomitant]
  8. ZITHROMAX [Concomitant]
  9. FLEXERIL [Concomitant]
     Dosage: AS NEEDED
  10. AMITIZA [Concomitant]

REACTIONS (4)
  - ASTHMA [None]
  - DYSPNOEA [None]
  - HYPERHIDROSIS [None]
  - MYOCARDIAL INFARCTION [None]
